FAERS Safety Report 6341180-0 (Version None)
Quarter: 2009Q3

REPORT INFORMATION
  Report Type: 
  Country: None (occurrence: None)
  Receive Date: 20090904
  Receipt Date: 20090325
  Transmission Date: 20100115
  Serious: No
  Sender: FDA-Public Use
  Company Number: A0775368A

PATIENT
  Age: 48 Year
  Sex: Female

DRUGS (3)
  1. REQUIP [Suspect]
     Indication: RESTLESS LEGS SYNDROME
     Route: 048
     Dates: start: 20090324
  2. HIGH BLOOD PRESSURE PILL [Concomitant]
  3. INSULIN [Concomitant]

REACTIONS (1)
  - DRUG INEFFECTIVE [None]
